FAERS Safety Report 7376120-9 (Version None)
Quarter: 2011Q1

REPORT INFORMATION
  Report Type: 
  Country: None (occurrence: None)
  Receive Date: 20110325
  Receipt Date: 20110311
  Transmission Date: 20110831
  Serious: Yes (Hospitalization)
  Sender: FDA-Public Use
  Company Number: PHHY2011FR20462

PATIENT
  Age: 48 Year
  Sex: Male
  Weight: 71 kg

DRUGS (4)
  1. FLUOROURACIL [Suspect]
     Dosage: 4510 MG, UNK OVER 46 HOURS
  2. FLUOROURACIL [Suspect]
     Indication: ADENOCARCINOMA
     Dosage: 750 MG, UNK
  3. CALCIUM FOLINATE [Concomitant]
     Dosage: 375 MG, UNK
  4. OXALIPLATIN [Concomitant]
     Dosage: 160 MG, UNK

REACTIONS (14)
  - ACUTE CORONARY SYNDROME [None]
  - STATUS EPILEPTICUS [None]
  - CARDIAC FAILURE [None]
  - ARRHYTHMIA [None]
  - VOMITING [None]
  - CHEST PAIN [None]
  - CARDIAC ARREST [None]
  - STRESS CARDIOMYOPATHY [None]
  - HAEMODYNAMIC INSTABILITY [None]
  - LEFT VENTRICULAR DYSFUNCTION [None]
  - METASTASES TO LIVER [None]
  - DIARRHOEA [None]
  - HYPOKINESIA [None]
  - VENTRICULAR TACHYCARDIA [None]
